FAERS Safety Report 10278188 (Version 3)
Quarter: 2014Q3

REPORT INFORMATION
  Report Type: Spontaneous
  Country: BR (occurrence: BR)
  Receive Date: 20140704
  Receipt Date: 20140725
  Transmission Date: 20150326
  Serious: Yes (Death, Other)
  Sender: FDA-Public Use
  Company Number: BR-ROCHE-1428775

PATIENT
  Age: 23 Year
  Sex: Female
  Weight: 50 kg

DRUGS (6)
  1. ATORVASTATIN [Concomitant]
     Active Substance: ATORVASTATIN
     Indication: LUPUS NEPHRITIS
     Route: 048
     Dates: start: 2009
  2. AZATHIOPRINE. [Concomitant]
     Active Substance: AZATHIOPRINE
     Indication: LUPUS NEPHRITIS
     Route: 048
     Dates: start: 2007
  3. PREDNISOLONE. [Concomitant]
     Active Substance: PREDNISOLONE
     Indication: LUPUS NEPHRITIS
     Dosage: 20 MG ALTERNATED WITH 5 MG
     Route: 048
     Dates: start: 2004
  4. MABTHERA [Suspect]
     Active Substance: RITUXIMAB
     Indication: LUPUS NEPHRITIS
     Dosage: CYCLES WITH 2 INF. EVERY 6 OR 8 MONTHS
     Route: 042
     Dates: start: 20070323
  5. HYDROXYCHLOROQUINE [Concomitant]
     Active Substance: HYDROXYCHLOROQUINE
     Indication: LUPUS NEPHRITIS
     Route: 048
     Dates: start: 2004
  6. BENICAR HCT [Concomitant]
     Active Substance: HYDROCHLOROTHIAZIDE\OLMESARTAN MEDOXOMIL
     Indication: LUPUS NEPHRITIS
     Dosage: 40/25 MG
     Route: 048
     Dates: start: 2013

REACTIONS (3)
  - Septic shock [Not Recovered/Not Resolved]
  - Cardiac arrest [Not Recovered/Not Resolved]
  - Febrile neutropenia [Fatal]

NARRATIVE: CASE EVENT DATE: 20140507
